FAERS Safety Report 24594734 (Version 1)
Quarter: 2024Q4

REPORT INFORMATION
  Report Type: Spontaneous
  Country: US (occurrence: US)
  Receive Date: 20241108
  Receipt Date: 20241108
  Transmission Date: 20250114
  Serious: Yes (Death, Other)
  Sender: AMGEN
  Company Number: US-AMGEN-USASP2024221200

PATIENT

DRUGS (2)
  1. PREDNISONE [Suspect]
     Active Substance: PREDNISONE
     Indication: T-cell type acute leukaemia
     Dosage: UNK
     Route: 065
  2. PREDNISONE [Suspect]
     Active Substance: PREDNISONE
     Indication: T-cell lymphoma

REACTIONS (30)
  - Death [Fatal]
  - Hypoxia [Unknown]
  - Hyperbilirubinaemia [Unknown]
  - Neuropathy peripheral [Unknown]
  - Pancreatitis [Unknown]
  - Seizure [Unknown]
  - Embolism [Unknown]
  - Sepsis [Unknown]
  - Anaphylactic reaction [Unknown]
  - Acute respiratory distress syndrome [Unknown]
  - Ileus [Unknown]
  - Central nervous system infection [Unknown]
  - Infection [Unknown]
  - Pyrexia [Unknown]
  - Constipation [Unknown]
  - Alanine aminotransferase increased [Unknown]
  - Aspartate aminotransferase increased [Unknown]
  - Hypertension [Unknown]
  - Hyperglycaemia [Unknown]
  - Hyponatraemia [Unknown]
  - Hypotension [Unknown]
  - Adverse event [Unknown]
  - Ear infection [Unknown]
  - Rhinitis [Unknown]
  - Pharyngitis [Unknown]
  - Respiratory tract infection [Unknown]
  - Haematological infection [Unknown]
  - Gastrointestinal infection [Unknown]
  - Skin infection [Unknown]
  - Soft tissue infection [Unknown]
